FAERS Safety Report 4490520-6 (Version None)
Quarter: 2004Q4

REPORT INFORMATION
  Report Type: 
  Country: None (occurrence: None)
  Receive Date: 20041029
  Receipt Date: 20041018
  Transmission Date: 20050328
  Serious: Yes (Hospitalization)
  Sender: FDA-Public Use
  Company Number: 2004UW21778

PATIENT
  Age: 61 Year
  Sex: Female

DRUGS (7)
  1. CRESTOR [Suspect]
     Dosage: 10 MG DAILY PO
     Route: 048
     Dates: start: 20040406
  2. ASPIRIN [Suspect]
     Dosage: 325 MG DAILY
     Route: 048
  3. PEPTO-BISMOL [Suspect]
  4. ADVIL [Suspect]
     Dosage: 2 TO 3 TIMES DAILY
     Route: 048
  5. ALEVE [Suspect]
     Dosage: 2-3 TIME DAILY
     Route: 048
  6. LEVOTHROID [Concomitant]
  7. ESTRACE [Concomitant]

REACTIONS (12)
  - ASPARTATE AMINOTRANSFERASE INCREASED [None]
  - BLOOD URIC ACID INCREASED [None]
  - DEHYDRATION [None]
  - GASTROENTERITIS [None]
  - NEPHRITIS INTERSTITIAL [None]
  - PLATELET COUNT DECREASED [None]
  - RENAL FAILURE [None]
  - RENAL TUBULAR NECROSIS [None]
  - RHABDOMYOLYSIS [None]
  - URINARY TRACT INFECTION [None]
  - VASCULITIS [None]
  - VIRAL INFECTION [None]
